FAERS Safety Report 7509118-8 (Version None)
Quarter: 2011Q2

REPORT INFORMATION
  Report Type: 
  Country: None (occurrence: None)
  Receive Date: 20110527
  Receipt Date: 20110516
  Transmission Date: 20111010
  Serious: No
  Sender: FDA-Public Use
  Company Number: KR-JNJFOC-20110508079

PATIENT
  Age: 68 Year
  Sex: Female

DRUGS (1)
  1. DURAGESIC-100 [Suspect]
     Indication: PRODUCT USED FOR UNKNOWN INDICATION
     Dosage: HALF PATCH APPLIED
     Route: 062

REACTIONS (5)
  - INTENTIONAL DRUG MISUSE [None]
  - VOMITING [None]
  - SENSORY DISTURBANCE [None]
  - DRUG ADMINISTRATION ERROR [None]
  - DIZZINESS [None]
